FAERS Safety Report 13370998 (Version 2)
Quarter: 2017Q2

REPORT INFORMATION
  Report Type: Report from Study
  Country: US (occurrence: US)
  Receive Date: 20170324
  Receipt Date: 20170523
  Transmission Date: 20170830
  Serious: No
  Sender: FDA-Public Use
  Company Number: US-BRISTOL-MYERS SQUIBB COMPANY-BMS-2017-022322

PATIENT
  Sex: Female
  Weight: 63.49 kg

DRUGS (1)
  1. ABATACEPT [Suspect]
     Active Substance: ABATACEPT
     Indication: RHEUMATOID ARTHRITIS
     Dosage: UNK
     Route: 058
     Dates: start: 201703

REACTIONS (4)
  - Respiratory tract congestion [Unknown]
  - Hypersensitivity [Unknown]
  - Head discomfort [Unknown]
  - Drug dose omission [Unknown]
